FAERS Safety Report 22528101 (Version 1)
Quarter: 2023Q2

REPORT INFORMATION
  Report Type: Report from Study
  Country: BR (occurrence: BR)
  Receive Date: 20230607
  Receipt Date: 20230607
  Transmission Date: 20230722
  Serious: Yes (Other)
  Sender: FDA-Public Use
  Company Number: BR-CELLTRION INC.-2023BR011421

PATIENT

DRUGS (9)
  1. TRUXIMA [Suspect]
     Active Substance: RITUXIMAB-ABBS
     Indication: Scleroderma
     Dosage: 4 AMPOULES EVERY 6 MONTH
     Route: 042
  2. TRUXIMA [Suspect]
     Active Substance: RITUXIMAB-ABBS
     Indication: Rheumatoid arthritis
  3. METHOTREXATE [Concomitant]
     Active Substance: METHOTREXATE
     Indication: Scleroderma
     Dosage: 0.6 MG, PER WEEK, STARTED 14 YEARS AGO
     Route: 058
  4. PREDNISONE [Concomitant]
     Active Substance: PREDNISONE
     Indication: Rheumatoid arthritis
     Dosage: 1 CAPSULE PER DAY, STARTED 14 YEARS AGO
     Route: 048
  5. CILOSTAZOL [Concomitant]
     Active Substance: CILOSTAZOL
     Indication: Vasculitis
     Dosage: 2 CAPSULE PER DAY, STARTED 14 YEARS AGO
     Route: 048
  6. NIMODIPINE [Concomitant]
     Active Substance: NIMODIPINE
     Dosage: 1 CAPSULE PER DAY, STARTED 14 YEARS AGO
     Route: 048
  7. NIFEDIPINE [Concomitant]
     Active Substance: NIFEDIPINE
     Indication: Vasculitis
     Dosage: 1 CAPSULE PER DAY, STARTED 14 YEARS AGO
     Route: 048
  8. FOLIC ACID [Concomitant]
     Active Substance: FOLIC ACID
     Indication: Rheumatoid arthritis
     Dosage: 1 CAPSULE PER DAY, STARTED 14 YEARS AGO
     Route: 048
  9. OMEPRAZOLE [Concomitant]
     Active Substance: OMEPRAZOLE
     Dosage: 1 CAPSULE PER DAY, STARTED 14 YEARS AGO
     Route: 048

REACTIONS (5)
  - Scleroderma [Unknown]
  - Ligament sprain [Not Recovered/Not Resolved]
  - Arthralgia [Not Recovered/Not Resolved]
  - Product container issue [Unknown]
  - Off label use [Unknown]
